FAERS Safety Report 9543828 (Version 1)
Quarter: 2013Q2

REPORT INFORMATION
  Report Type: Spontaneous
  Country: US (occurrence: None)
  Receive Date: 20130524
  Receipt Date: 20130524
  Transmission Date: 20140414
  Serious: Yes (Hospitalization)
  Sender: FDA-Public Use
  Company Number: PHEH2012US023708

PATIENT
  Age: 52 Year
  Sex: Female
  Weight: 78.5 kg

DRUGS (8)
  1. GILENYA (FINGOLIMOD) CAPSULE, 0.5MG [Suspect]
     Indication: RELAPSING-REMITTING MULTIPLE SCLEROSIS
     Route: 048
     Dates: start: 20121129
  2. ZYRTEC (CETIRIZINE HYDROCHLORIDE) [Concomitant]
  3. LEVOXYL (LEVOTHYROXINE SODIUM) [Concomitant]
  4. BACLOFEN [Concomitant]
  5. VICODIN (HYDROCODONE BITARTRATE, PARACETAMOL) [Concomitant]
  6. CYMBALTA (DULOXETINE HYDROCHLORIDE) [Concomitant]
  7. NEXIUM 1-2-3 (AMOXICILLIN TRIHYDRATE, CLARITHROMYCIN, ESOMEPRAZOLE MAGNESIUM) [Concomitant]
  8. AMITRIPTYLINE [Concomitant]

REACTIONS (3)
  - Heart rate decreased [None]
  - Urticaria [None]
  - Chest pain [None]
